FAERS Safety Report 8197926 (Version 2)
Quarter: 2012Q4

REPORT INFORMATION
  Report Type: 
  Country: US (occurrence: US)
  Receive Date: 20111025
  Receipt Date: 20121009
  Transmission Date: 20130627
  Serious: Yes (Other)
  Sender: FDA-Public Use
  Company Number: US-US-EMD SERONO, INC.-7089642

PATIENT
  Age: 49 None
  Sex: Female

DRUGS (3)
  1. REBIF [Suspect]
     Indication: MULTIPLE SCLEROSIS
     Route: 058
     Dates: start: 20101115
  2. KLONOPIN [Concomitant]
     Indication: BALANCE DISORDER
     Dates: end: 2011
  3. KLONOPIN [Concomitant]
     Dates: start: 2011

REACTIONS (3)
  - Optic neuritis [Unknown]
  - Fall [Unknown]
  - Tearfulness [Not Recovered/Not Resolved]
